FAERS Safety Report 6347051-8 (Version None)
Quarter: 2009Q3

REPORT INFORMATION
  Report Type: 
  Country: None (occurrence: None)
  Receive Date: 20090910
  Receipt Date: 20070726
  Transmission Date: 20100115
  Serious: Yes (Other)
  Sender: FDA-Public Use
  Company Number: US-ASTRAZENECA-2007UW05471

PATIENT
  Age: 18527 Day
  Sex: Female
  Weight: 105.2 kg

DRUGS (22)
  1. SEROQUEL [Suspect]
     Indication: SCHIZOPHRENIA
     Dosage: 100 MG 400 MG
     Route: 048
     Dates: start: 20010816
  2. SEROQUEL [Suspect]
     Dosage: 400 MG DAILY
     Route: 048
     Dates: start: 20011001
  3. ABILIFY [Concomitant]
     Dates: start: 20050101, end: 20060101
  4. CARBAMAZEPINE [Concomitant]
     Dates: start: 20070501
  5. DILTIAZEM [Concomitant]
     Dates: start: 20070501
  6. CITALOPRAM HYDROBROMIDE [Concomitant]
     Dates: start: 20070501
  7. LYRICA [Concomitant]
     Dates: start: 20070501
  8. PLAVIX [Concomitant]
     Dosage: 75 DAILY
     Dates: start: 20010701
  9. PRAVASTATIN [Concomitant]
     Dates: start: 20070501
  10. METOPROLOL [Concomitant]
     Dates: start: 20070501
  11. ASPIRIN [Concomitant]
     Dosage: 81 MG-325 MG
     Dates: start: 20010701
  12. WELLBUTRIN SR [Concomitant]
     Route: 048
     Dates: start: 20010901
  13. DESYREL [Concomitant]
     Dosage: 100 MG-200 MG
     Dates: start: 20010901
  14. RISPERDAL [Concomitant]
     Dosage: 2 MG IN THE MORNING AND 4 MG AT NIGHT
     Dates: start: 20010901
  15. COLACE [Concomitant]
     Route: 048
     Dates: start: 20010901
  16. PROCARDIA XL [Concomitant]
     Indication: HYPERTENSION
     Dosage: 30 MG-300 MG
     Dates: start: 20010901
  17. NITROGLYCERIN [Concomitant]
     Indication: CHEST PAIN
     Route: 048
     Dates: start: 20010601
  18. PREMARIN [Concomitant]
     Route: 048
     Dates: start: 20010701
  19. NORVASC [Concomitant]
     Route: 048
     Dates: start: 20020501
  20. LORAZEPAM [Concomitant]
     Route: 048
     Dates: start: 20020501
  21. ZOLOFT [Concomitant]
     Route: 048
     Dates: start: 20020501
  22. ZOCOR [Concomitant]
     Route: 048
     Dates: start: 20020501

REACTIONS (3)
  - LEFT VENTRICULAR HYPERTROPHY [None]
  - MYOCARDIAL INFARCTION [None]
  - TYPE 2 DIABETES MELLITUS [None]
